FAERS Safety Report 16885785 (Version 1)
Quarter: 2019Q4

REPORT INFORMATION
  Report Type: Spontaneous
  Country: EG (occurrence: EG)
  Receive Date: 20191004
  Receipt Date: 20191004
  Transmission Date: 20200122
  Serious: Yes (Other)
  Sender: FDA-Public Use
  Company Number: EG-HIKMA PHARMACEUTICALS USA INC.-EG-H14001-19-05165

PATIENT
  Age: 46 Year
  Sex: Female

DRUGS (1)
  1. CARBOTINOL [Suspect]
     Active Substance: CARBOPLATIN
     Indication: OVARIAN CANCER
     Route: 065

REACTIONS (4)
  - Neutropenia [Unknown]
  - Hypochromic anaemia [Unknown]
  - Skin discolouration [Unknown]
  - Mouth ulceration [Unknown]
